FAERS Safety Report 10085339 (Version 2)
Quarter: 2014Q2

REPORT INFORMATION
  Report Type: Spontaneous
  Country: US (occurrence: US)
  Receive Date: 20140417
  Receipt Date: 20140616
  Transmission Date: 20141212
  Serious: No
  Sender: FDA-Public Use
  Company Number: US-009507513-1404USA002109

PATIENT
  Age: 65 Year
  Sex: Female
  Weight: 57.14 kg

DRUGS (1)
  1. CLARITIN-D-24 [Suspect]
     Indication: HYPERSENSITIVITY
     Dosage: 10 MG, ONCE
     Route: 048
     Dates: start: 201403, end: 201403

REACTIONS (4)
  - Palpitations [Recovered/Resolved]
  - Feeling jittery [Unknown]
  - Dry mouth [Recovered/Resolved]
  - Fatigue [Recovered/Resolved]
